FAERS Safety Report 26146761 (Version 1)
Quarter: 2025Q4

REPORT INFORMATION
  Report Type: Spontaneous
  Country: US (occurrence: None)
  Receive Date: 20251211
  Receipt Date: 20251211
  Transmission Date: 20260118
  Serious: Yes (Hospitalization)
  Sender: FDA-CTU
  Company Number: None

PATIENT
  Sex: Female

DRUGS (11)
  1. LENALIDOMIDE [Suspect]
     Active Substance: LENALIDOMIDE
     Indication: Neutropenia
     Dosage: FREQUENCY : AS DIRECTED;?FREQ: TAKE 1 CAPSULE BY MOUTH ONCE DAILY ON DAYS 1 THROUGH 21 EVERY 28 DAYS
     Route: 048
     Dates: start: 20250221
  2. ASPIRIN [Concomitant]
     Active Substance: ASPIRIN
  3. CLONIDINE [Concomitant]
     Active Substance: CLONIDINE
  4. DEXAMETHASONE [Concomitant]
     Active Substance: DEXAMETHASONE
  5. FERROUS SULFATE [Concomitant]
     Active Substance: FERROUS SULFATE
  6. FUROSEMIDE [Concomitant]
     Active Substance: FUROSEMIDE
  7. HYDROCHLOROTHIAZIDE [Concomitant]
     Active Substance: HYDROCHLOROTHIAZIDE
  8. NIFEDIPINE [Concomitant]
     Active Substance: NIFEDIPINE
  9. PROPRANOLOL [Concomitant]
     Active Substance: PROPRANOLOL HYDROCHLORIDE
  10. TRIAMTERENE [Concomitant]
     Active Substance: TRIAMTERENE
  11. VALACYCLOVIR [Concomitant]
     Active Substance: VALACYCLOVIR HYDROCHLORIDE

REACTIONS (3)
  - Fall [None]
  - Joint injury [None]
  - Therapy interrupted [None]
